FAERS Safety Report 24651348 (Version 8)
Quarter: 2025Q4

REPORT INFORMATION
  Report Type: Report from Study
  Country: CN (occurrence: CN)
  Receive Date: 20241122
  Receipt Date: 20251224
  Transmission Date: 20260117
  Serious: Yes (Death, Other)
  Sender: ABBVIE
  Company Number: CN-TAKEDA-2023TUS040582

PATIENT
  Age: 57 Year
  Sex: Female
  Weight: 54 kg

DRUGS (9)
  1. AVIBACTAM SODIUM\CEFTAZIDIME [Suspect]
     Active Substance: AVIBACTAM SODIUM\CEFTAZIDIME
     Indication: Product used for unknown indication
     Dosage: UNK
     Route: 065
  2. HERBALS [Suspect]
     Active Substance: HERBALS
     Indication: Product used for unknown indication
     Dosage: UNK UNK, BID
     Route: 048
     Dates: start: 20221014, end: 20221018
  3. CALCIUM GLUCONATE [Suspect]
     Active Substance: CALCIUM GLUCONATE
     Indication: Product used for unknown indication
     Dosage: UNK
     Route: 065
  4. ADCETRIS [Suspect]
     Active Substance: BRENTUXIMAB VEDOTIN
     Indication: Non-Hodgkin^s lymphoma
     Dosage: TIME INTERVAL: CYCLICAL: 97 MILLIGRAM (Q4WEEKS)
     Route: 041
     Dates: start: 20220905
  5. ADCETRIS [Suspect]
     Active Substance: BRENTUXIMAB VEDOTIN
     Indication: Non-Hodgkin^s lymphoma
     Dosage: UNK
     Route: 041
     Dates: start: 20220513
  6. ADCETRIS [Suspect]
     Active Substance: BRENTUXIMAB VEDOTIN
     Indication: Non-Hodgkin^s lymphoma
     Dosage: 100 MILLIGRAM
     Route: 041
     Dates: start: 20230308
  7. ADCETRIS [Suspect]
     Active Substance: BRENTUXIMAB VEDOTIN
     Indication: Non-Hodgkin^s lymphoma
     Dosage: TIME INTERVAL: CYCLICAL: 97 MILLIGRAM (Q12WEEKS)
     Route: 041
     Dates: start: 20220805
  8. VANCOMYCIN [Suspect]
     Active Substance: VANCOMYCIN
     Indication: Product used for unknown indication
     Dosage: UNK
     Route: 065
  9. CALCIUM [Suspect]
     Active Substance: CALCIUM
     Indication: Product used for unknown indication
     Dosage: UNK
     Route: 065

REACTIONS (29)
  - Acute myeloid leukaemia [Fatal]
  - Asthenia [Unknown]
  - Lymphocyte count decreased [Recovered/Resolved]
  - Lung disorder [Unknown]
  - Hypokalaemia [Recovered/Resolved]
  - Off label use [Unknown]
  - Pneumonia [Unknown]
  - Haemorrhoids [Unknown]
  - Hypotension [Recovered/Resolved]
  - Pulmonary fibrosis [Unknown]
  - Hyperglycaemia [Unknown]
  - Gastrointestinal haemorrhage [Unknown]
  - Platelet count decreased [Unknown]
  - Electrolyte imbalance [Not Recovered/Not Resolved]
  - Aspartate aminotransferase increased [Not Recovered/Not Resolved]
  - Anaemia [Unknown]
  - Pyrexia [Recovered/Resolved]
  - Dental caries [Unknown]
  - Dizziness [Recovered/Resolved]
  - White blood cell count decreased [Unknown]
  - Hypertriglyceridaemia [Unknown]
  - Hypoaesthesia [Unknown]
  - Hepatic function abnormal [Not Recovered/Not Resolved]
  - Gastrooesophageal reflux disease [Not Recovered/Not Resolved]
  - Bacterial infection [Unknown]
  - Alanine aminotransferase increased [Recovered/Resolved]
  - Acute myeloid leukaemia refractory [Fatal]
  - Second primary malignancy [Fatal]
  - Septic shock [Fatal]

NARRATIVE: CASE EVENT DATE: 20220113
